FAERS Safety Report 19572877 (Version 1)
Quarter: 2021Q3

REPORT INFORMATION
  Report Type: Spontaneous
  Country: SE (occurrence: SE)
  Receive Date: 20210716
  Receipt Date: 20210716
  Transmission Date: 20211014
  Serious: Yes (Congenital Anomaly, Other)
  Sender: FDA-Public Use
  Company Number: SE-UCBSA-2021033289

PATIENT
  Sex: Male

DRUGS (5)
  1. VALPROIC ACID. [Suspect]
     Active Substance: VALPROIC ACID
     Indication: PRODUCT USED FOR UNKNOWN INDICATION
     Dosage: 600 MG, QD, DURING 1ST TRIMESTER
     Route: 064
  2. VALPROIC ACID. [Suspect]
     Active Substance: VALPROIC ACID
     Dosage: DURING 2ND AND 3RD TRIMESTER
     Route: 064
  3. LAMOTRIGINE. [Suspect]
     Active Substance: LAMOTRIGINE
     Indication: PRODUCT USED FOR UNKNOWN INDICATION
     Dosage: DURING 1ST, 2ND AND 3RD TRIMESTER
     Route: 064
  4. LEVETIRACETAM. [Suspect]
     Active Substance: LEVETIRACETAM
     Indication: PRODUCT USED FOR UNKNOWN INDICATION
     Dosage: DURING 1ST, 2ND AND 3RD TRIMESTER
     Route: 064
  5. CLONAZEPAM. [Suspect]
     Active Substance: CLONAZEPAM
     Indication: PRODUCT USED FOR UNKNOWN INDICATION
     Dosage: DURING 3RD TRIMESTER
     Route: 064

REACTIONS (3)
  - Maternal exposure during pregnancy [Unknown]
  - Developmental hip dysplasia [Unknown]
  - Monorchidism [Unknown]
